FAERS Safety Report 21647234 (Version 2)
Quarter: 2023Q1

REPORT INFORMATION
  Report Type: Report from Study
  Country: AR (occurrence: AR)
  Receive Date: 20221127
  Receipt Date: 20230224
  Transmission Date: 20230418
  Serious: Yes (Other)
  Sender: FDA-Public Use
  Company Number: AR-ABBVIE-4215071

PATIENT
  Sex: Female

DRUGS (2)
  1. HUMIRA [Suspect]
     Active Substance: ADALIMUMAB
     Indication: Rheumatoid arthritis
     Route: 058
     Dates: start: 20140101
  2. COVID-19 VACCINE NOS [Suspect]
     Active Substance: COVID-19 VACCINE NOS
     Indication: COVID-19 immunisation
     Dosage: 1 IN ONCE
     Route: 030

REACTIONS (10)
  - Synovial cyst [Not Recovered/Not Resolved]
  - Lymphadenopathy [Unknown]
  - COVID-19 [Recovering/Resolving]
  - Vaccination site swelling [Unknown]
  - Abdominal discomfort [Unknown]
  - Influenza [Recovering/Resolving]
  - Hiatus hernia [Unknown]
  - Peripheral swelling [Unknown]
  - Malaise [Unknown]
  - Rheumatoid arthritis [Unknown]

NARRATIVE: CASE EVENT DATE: 20220101
